FAERS Safety Report 24644990 (Version 1)
Quarter: 2024Q4

REPORT INFORMATION
  Report Type: Spontaneous
  Country: CN (occurrence: CN)
  Receive Date: 20241121
  Receipt Date: 20241121
  Transmission Date: 20250114
  Serious: Yes (Hospitalization, Other)
  Sender: Kenvue
  Company Number: CN-KENVUE-20241104269

PATIENT

DRUGS (8)
  1. CHILDRENS MOTRIN [Suspect]
     Active Substance: IBUPROFEN
     Indication: Pyrexia
     Dosage: 10 MILLILITER, TWICE A DAY
     Route: 048
     Dates: start: 20241026, end: 20241028
  2. ANDROGRAPHOLIDE [Suspect]
     Active Substance: ANDROGRAPHOLIDE
     Indication: Pneumonia
     Dosage: 250 MILLIGRAM, ONCE A DAY
     Route: 041
     Dates: start: 20241026, end: 20241029
  3. SODIUM CHLORIDE [Suspect]
     Active Substance: SODIUM CHLORIDE
     Indication: Pneumonia
     Dosage: 250 MILLILITER, ONCE A DAY
     Route: 041
     Dates: start: 20241026, end: 202410
  4. SODIUM CHLORIDE [Suspect]
     Active Substance: SODIUM CHLORIDE
     Indication: Pyrexia
  5. MOXIFLOXACIN HYDROCHLORIDE [Suspect]
     Active Substance: MOXIFLOXACIN HYDROCHLORIDE
     Indication: Pneumonia
     Dosage: 0.4 GRAM, ONCE A DAY
     Route: 041
     Dates: start: 20241026, end: 20241030
  6. ITOPRIDE HYDROCHLORIDE [Concomitant]
     Active Substance: ITOPRIDE HYDROCHLORIDE
     Indication: Decreased appetite
     Dosage: 50 MILLIGRAM, THRICE A DAY
     Route: 048
     Dates: start: 20241026, end: 20241030
  7. HERBALS [Concomitant]
     Active Substance: HERBALS
     Indication: Cough
     Dosage: 1.350 GRAM, THRICE A DAY
     Route: 048
     Dates: start: 20241026, end: 20241030
  8. HERBALS\MENTHOL [Concomitant]
     Active Substance: HERBALS\MENTHOL
     Indication: Pneumonia
     Dosage: 6 GRAM, THRICE A DAY
     Route: 048
     Dates: start: 20241026, end: 20241030

REACTIONS (2)
  - Renal tubular necrosis [Recovering/Resolving]
  - Product administered to patient of inappropriate age [Unknown]

NARRATIVE: CASE EVENT DATE: 20241026
